FAERS Safety Report 9907182 (Version 1)
Quarter: 2014Q1

REPORT INFORMATION
  Report Type: Spontaneous
  Country: PT (occurrence: FR)
  Receive Date: 20140218
  Receipt Date: 20140218
  Transmission Date: 20141002
  Serious: Yes (Disabling)
  Sender: FDA-Public Use
  Company Number: 2014SP000447

PATIENT
  Age: 75 Year
  Sex: Male

DRUGS (2)
  1. ZEBINIX (ESLICARBAZEPINE ACETATE) [Suspect]
     Indication: EPILEPSY
     Route: 048
     Dates: end: 20141225
  2. ZEBINIX (ESLICARBAZEPINE ACETATE) [Suspect]
     Indication: EPILEPSY
     Dates: start: 201310

REACTIONS (2)
  - Pruritus [Recovering/Resolving]
  - Rash generalised [Recovering/Resolving]
